FAERS Safety Report 19677726 (Version 1)
Quarter: 2021Q3

REPORT INFORMATION
  Report Type: Spontaneous
  Country: JP (occurrence: JP)
  Receive Date: 20210809
  Receipt Date: 20210809
  Transmission Date: 20211014
  Serious: Yes (Other)
  Sender: FDA-Public Use
  Company Number: JP-PFIZER INC-202100971653

PATIENT
  Age: 70 Year
  Sex: Male
  Weight: 64 kg

DRUGS (17)
  1. SAMSCA OD [Concomitant]
     Dosage: UNK
  2. AMIKACIN [AMIKACIN SULFATE] [Concomitant]
     Active Substance: AMIKACIN SULFATE
     Dosage: 2 A
     Dates: start: 20200903
  3. THYRADIN S [Concomitant]
     Active Substance: LEVOTHYROXINE SODIUM
     Dosage: UNK
  4. CORTRIL [Concomitant]
     Active Substance: HYDROCORTISONE
     Dosage: UNK
  5. LUNESTA [Concomitant]
     Active Substance: ESZOPICLONE
     Dosage: UNK
  6. FEXOFENADINE HYDROCHLORIDE. [Concomitant]
     Active Substance: FEXOFENADINE HYDROCHLORIDE
     Dosage: UNK
  7. THYRADIN S [Concomitant]
     Active Substance: LEVOTHYROXINE SODIUM
     Dosage: UNK
  8. DIART [AZOSEMIDE] [Concomitant]
     Active Substance: AZOSEMIDE
     Dosage: UNK
  9. MIYA?BM [Concomitant]
     Active Substance: CLOSTRIDIUM BUTYRICUM SPORES STRAIN M-55
     Dosage: UNK
  10. HYDROCHLOROTHIAZIDE. [Concomitant]
     Active Substance: HYDROCHLOROTHIAZIDE
     Dosage: UNK
  11. LANSOPRAZOLE. [Concomitant]
     Active Substance: LANSOPRAZOLE
     Dosage: UNK
  12. SPIRONOLACTONE. [Concomitant]
     Active Substance: SPIRONOLACTONE
     Dosage: UNK
  13. DALACIN S 600MG [Suspect]
     Active Substance: CLINDAMYCIN PHOSPHATE
     Indication: ARTHRITIS BACTERIAL
     Dosage: 600 MG, 3X/DAY
     Route: 042
     Dates: start: 20200903, end: 20201005
  14. PENICILLIN G POTASSIUM. [Suspect]
     Active Substance: PENICILLIN G POTASSIUM
     Indication: ARTHRITIS BACTERIAL
     Dosage: 4000000 UNITS X 6
     Dates: start: 20200903, end: 20200913
  15. CEFTRIAXONE NA [Suspect]
     Active Substance: CEFTRIAXONE
     Indication: ARTHRITIS BACTERIAL
     Dosage: 2 G, 2X/DAY
     Route: 042
     Dates: start: 20200914, end: 20201005
  16. DAIKENCHUTO [Concomitant]
     Active Substance: HERBALS
     Dosage: UNK
  17. TELMISARTAN. [Concomitant]
     Active Substance: TELMISARTAN
     Dosage: UNK

REACTIONS (7)
  - Drug eruption [Unknown]
  - Pleural effusion [Unknown]
  - Ileus paralytic [Recovering/Resolving]
  - Endocarditis [Recovered/Resolved]
  - Neutrophil count decreased [Recovered/Resolved]
  - Off label use [Unknown]
  - White blood cell count decreased [Recovering/Resolving]

NARRATIVE: CASE EVENT DATE: 202009
